FAERS Safety Report 23300504 (Version 1)
Quarter: 2023Q4

REPORT INFORMATION
  Report Type: Spontaneous
  Country: US (occurrence: US)
  Receive Date: 20231215
  Receipt Date: 20231215
  Transmission Date: 20240109
  Serious: No
  Sender: FDA-Public Use
  Company Number: US-BIOVITRUM-2023-US-020224

PATIENT
  Age: 12 Month
  Sex: Female
  Weight: 7.25 kg

DRUGS (2)
  1. SYNAGIS [Suspect]
     Active Substance: PALIVIZUMAB
     Indication: Premature baby
     Dosage: ONCE A MONTH?50MG SDV/INJ 0.5ML
     Route: 030
  2. SYNAGIS [Suspect]
     Active Substance: PALIVIZUMAB
     Indication: Chronic respiratory disease
     Dosage: ONCE A MONTH?100MG SDV/INJ 1ML
     Route: 030

REACTIONS (2)
  - Pyrexia [Unknown]
  - Teething [Unknown]
